FAERS Safety Report 7982530-9 (Version None)
Quarter: 2011Q4

REPORT INFORMATION
  Report Type: 
  Country: None (occurrence: None)
  Receive Date: 20111215
  Receipt Date: 20111213
  Transmission Date: 20120403
  Serious: No
  Sender: FDA-Public Use
  Company Number: PHEH2011US009233

PATIENT
  Sex: Female

DRUGS (7)
  1. PREVACID [Concomitant]
     Dosage: 30 MG
  2. METFORMIN HCL [Concomitant]
     Dosage: 1000 MG
  3. VITAMIN D [Concomitant]
     Dosage: 1000 U
  4. CALCIUM [Concomitant]
     Dosage: 500 MG
  5. COZAAR [Concomitant]
     Dosage: 100 MG
  6. TASIGNA [Suspect]
     Indication: CHRONIC MYELOID LEUKAEMIA
     Dosage: 400 MG, BID
     Route: 048
  7. ASPIRIN [Concomitant]
     Dosage: 81 MG

REACTIONS (2)
  - VOMITING [None]
  - DIARRHOEA [None]
